FAERS Safety Report 12909123 (Version 1)
Quarter: 2016Q4

REPORT INFORMATION
  Report Type: Spontaneous
  Country: US (occurrence: US)
  Receive Date: 20161103
  Receipt Date: 20161103
  Transmission Date: 20170207
  Serious: No
  Sender: FDA-Public Use
  Company Number: US-JAZZ-2016-US-017119

PATIENT
  Sex: Female

DRUGS (46)
  1. TREXIMET [Concomitant]
     Active Substance: NAPROXEN SODIUM\SUMATRIPTAN SUCCINATE
  2. GABAPENTIN. [Concomitant]
     Active Substance: GABAPENTIN
  3. OPANA [Concomitant]
     Active Substance: OXYMORPHONE HYDROCHLORIDE
  4. VITAMIN D [Concomitant]
     Active Substance: CHOLECALCIFEROL
  5. ADDERALL [Concomitant]
     Active Substance: AMPHETAMINE ASPARTATE\AMPHETAMINE SULFATE\DEXTROAMPHETAMINE SACCHARATE\DEXTROAMPHETAMINE SULFATE
  6. EPIPEN [Concomitant]
     Active Substance: EPINEPHRINE
  7. KETOROLAC [Concomitant]
     Active Substance: KETOROLAC\KETOROLAC TROMETHAMINE
  8. SINGULAIR [Concomitant]
     Active Substance: MONTELUKAST SODIUM
  9. CLONAZEPAM. [Concomitant]
     Active Substance: CLONAZEPAM
  10. NYQUIL COLD AND FLU [Concomitant]
     Active Substance: ACETAMINOPHEN\DEXTROMETHORPHAN HYDROBROMIDE\DOXYLAMINE SUCCINATE
  11. XYREM [Suspect]
     Active Substance: SODIUM OXYBATE
     Dosage: 3.75 G, BID
     Route: 048
     Dates: start: 201108, end: 201109
  12. LYRICA [Concomitant]
     Active Substance: PREGABALIN
  13. CHLORZOXAZONE. [Concomitant]
     Active Substance: CHLORZOXAZONE
  14. METHYLPHENIDATE. [Concomitant]
     Active Substance: METHYLPHENIDATE
  15. PROAIR HFA [Concomitant]
     Active Substance: ALBUTEROL SULFATE
  16. PROMETHAZINE [Concomitant]
     Active Substance: PROMETHAZINE\PROMETHAZINE HYDROCHLORIDE
  17. XYREM [Suspect]
     Active Substance: SODIUM OXYBATE
     Dosage: 2.25 G, BID
     Route: 048
     Dates: start: 201108, end: 201108
  18. DICLOFENAC [Concomitant]
     Active Substance: DICLOFENAC
  19. PEPTO-BISMOL INSTACOOL [Concomitant]
     Active Substance: BISMUTH SUBSALICYLATE
  20. ZANAFLEX [Concomitant]
     Active Substance: TIZANIDINE HYDROCHLORIDE
  21. AMITIZA [Concomitant]
     Active Substance: LUBIPROSTONE
  22. XYREM [Suspect]
     Active Substance: SODIUM OXYBATE
     Dosage: 3 G, BID
     Route: 048
     Dates: start: 200804, end: 200806
  23. XYREM [Suspect]
     Active Substance: SODIUM OXYBATE
     Dosage: 4.5 G, BID
     Route: 048
     Dates: start: 201109
  24. CALM [Concomitant]
     Active Substance: TRIFLUOPERAZINE HYDROCHLORIDE
  25. HYDROXYZINE HCL [Concomitant]
     Active Substance: HYDROXYZINE HYDROCHLORIDE
  26. ATORVASTATIN [Concomitant]
     Active Substance: ATORVASTATIN
  27. XYREM [Suspect]
     Active Substance: SODIUM OXYBATE
     Dosage: 2.25 G, BID
     Route: 048
     Dates: start: 201011, end: 2011
  28. DULCOLAX NOS [Concomitant]
     Active Substance: BISACODYL OR DOCUSATE SODIUM
  29. LIDOCAINE. [Concomitant]
     Active Substance: LIDOCAINE
  30. XYREM [Suspect]
     Active Substance: SODIUM OXYBATE
     Indication: NARCOLEPSY
     Dosage: 2.25 G, BID
     Route: 048
     Dates: start: 200803, end: 200804
  31. XYREM [Suspect]
     Active Substance: SODIUM OXYBATE
     Dosage: 4.5 G, BID
     Route: 048
     Dates: start: 200806, end: 200811
  32. DIPHENHYDRAMINE. [Concomitant]
     Active Substance: DIPHENHYDRAMINE
  33. FENTANYL. [Concomitant]
     Active Substance: FENTANYL
  34. PROVIGIL [Concomitant]
     Active Substance: MODAFINIL
  35. LIDODERM [Concomitant]
     Active Substance: LIDOCAINE
  36. MEGESTROL ACETATE. [Concomitant]
     Active Substance: MEGESTROL ACETATE
  37. PREDNISONE. [Concomitant]
     Active Substance: PREDNISONE
  38. PROTONIX [Concomitant]
     Active Substance: PANTOPRAZOLE SODIUM
  39. TRAZODONE [Concomitant]
     Active Substance: TRAZODONE HYDROCHLORIDE
  40. ASPIRIN. [Concomitant]
     Active Substance: ASPIRIN
  41. GUAIFENESIN. [Concomitant]
     Active Substance: GUAIFENESIN
  42. HYDROCODONE [Concomitant]
     Active Substance: HYDROCODONE
  43. METAXALONE. [Concomitant]
     Active Substance: METAXALONE
  44. ULTRAM [Concomitant]
     Active Substance: TRAMADOL HYDROCHLORIDE
  45. NORCO [Concomitant]
     Active Substance: ACETAMINOPHEN\HYDROCODONE BITARTRATE
  46. VOLTAREN [Concomitant]
     Active Substance: DICLOFENAC SODIUM

REACTIONS (1)
  - Malaise [Not Recovered/Not Resolved]
